APPROVED DRUG PRODUCT: CAPTOPRIL AND HYDROCHLOROTHIAZIDE
Active Ingredient: CAPTOPRIL; HYDROCHLOROTHIAZIDE
Strength: 50MG;25MG
Dosage Form/Route: TABLET;ORAL
Application: A075055 | Product #003
Applicant: IVAX PHARMACEUTICALS INC SUB TEVA PHARMACEUTICALS USA
Approved: Jun 18, 1998 | RLD: No | RS: No | Type: DISCN